FAERS Safety Report 10788770 (Version 1)
Quarter: 2015Q1

REPORT INFORMATION
  Report Type: Spontaneous
  Country: US (occurrence: None)
  Receive Date: 20150211
  Receipt Date: 20150211
  Transmission Date: 20150721
  Serious: No
  Sender: FDA-Public Use
  Company Number: None

PATIENT
  Age: 34 Year
  Sex: Male
  Weight: 95.26 kg

DRUGS (1)
  1. REMERON [Suspect]
     Active Substance: MIRTAZAPINE
     Indication: SLEEP DISORDER
     Dosage: 15 / 1 PILL ONCE DAILY TAKEN BY MOUTH
     Route: 048
     Dates: start: 20150206, end: 20150210

REACTIONS (1)
  - Somnambulism [None]

NARRATIVE: CASE EVENT DATE: 20150210
